FAERS Safety Report 16837033 (Version 1)
Quarter: 2019Q3

REPORT INFORMATION
  Report Type: Spontaneous
  Country: US (occurrence: US)
  Receive Date: 20190923
  Receipt Date: 20190923
  Transmission Date: 20191005
  Serious: No
  Sender: FDA-Public Use
  Company Number: US-NOVEN PHARMACEUTICALS, INC.-US2018000667

PATIENT

DRUGS (1)
  1. COMBIPATCH [Suspect]
     Active Substance: ESTRADIOL\NORETHINDRONE ACETATE
     Indication: PRODUCT USED FOR UNKNOWN INDICATION
     Dosage: 0.05/0.25 MG, UNKNOWN
     Route: 062
     Dates: start: 2018

REACTIONS (11)
  - Application site rash [Not Recovered/Not Resolved]
  - Application site pain [Unknown]
  - Application site pruritus [Not Recovered/Not Resolved]
  - Application site swelling [Not Recovered/Not Resolved]
  - Application site hypersensitivity [Recovering/Resolving]
  - Application site erythema [Recovered/Resolved]
  - Skin laceration [Unknown]
  - Head discomfort [Not Recovered/Not Resolved]
  - Application site irritation [Unknown]
  - Product quality issue [Not Recovered/Not Resolved]
  - Pyrexia [Not Recovered/Not Resolved]

NARRATIVE: CASE EVENT DATE: 2018
